FAERS Safety Report 19349800 (Version 1)
Quarter: 2021Q2

REPORT INFORMATION
  Report Type: Spontaneous
  Country: US (occurrence: US)
  Receive Date: 20210601
  Receipt Date: 20210601
  Transmission Date: 20210717
  Serious: No
  Sender: FDA-Public Use
  Company Number: None

PATIENT
  Age: 20 Year
  Sex: Female

DRUGS (1)
  1. NYSTATIN OINTMENT USP [Suspect]
     Active Substance: NYSTATIN

REACTIONS (2)
  - Breast pain [None]
  - Breast mass [None]

NARRATIVE: CASE EVENT DATE: 20210530
